FAERS Safety Report 24546198 (Version 3)
Quarter: 2024Q4

REPORT INFORMATION
  Report Type: Spontaneous
  Country: TR (occurrence: TR)
  Receive Date: 20241024
  Receipt Date: 20241125
  Transmission Date: 20250115
  Serious: Yes (Life-Threatening, Hospitalization)
  Sender: ANI
  Company Number: TR-ANIPHARMA-2024-TR-000129

PATIENT
  Age: 47 Year
  Sex: Female
  Weight: 80 kg

DRUGS (6)
  1. FLUVOXAMINE [Suspect]
     Active Substance: FLUVOXAMINE
     Indication: Schizophrenia
     Dosage: 300.0 MILLIGRAM(S) (100 MILLIGRAM(S), 3 IN 1 DAY)
     Dates: end: 20240926
  2. RISPERDAL CONSTA [Suspect]
     Active Substance: RISPERIDONE
     Dosage: 2.5 MILLIGRAM(S) (37.5 MILLIGRAM(S), 1 IN 15 DAY)
     Route: 030
     Dates: end: 20240926
  3. VALPROATE SODIUM [Suspect]
     Active Substance: VALPROATE SODIUM
     Dates: end: 20240926
  4. ABILIFY [Suspect]
     Active Substance: ARIPIPRAZOLE
     Dates: end: 20240926
  5. INVEGA [Suspect]
     Active Substance: PALIPERIDONE
     Dates: end: 20240926
  6. AKINETON [Suspect]
     Active Substance: BIPERIDEN HYDROCHLORIDE
     Dates: end: 20240926

REACTIONS (6)
  - Delayed recovery from anaesthesia [Recovered/Resolved]
  - Delayed recovery from anaesthesia [Recovered/Resolved]
  - Drug interaction [Recovered/Resolved]
  - Product use in unapproved indication [Not Recovered/Not Resolved]
  - Urinary incontinence [Recovered/Resolved]
  - Lagophthalmos [Recovered/Resolved]

NARRATIVE: CASE EVENT DATE: 20240927
